FAERS Safety Report 25964046 (Version 2)
Quarter: 2025Q4

REPORT INFORMATION
  Report Type: Spontaneous
  Country: EU (occurrence: EU)
  Receive Date: 20251027
  Receipt Date: 20251124
  Transmission Date: 20260118
  Serious: Yes (Hospitalization)
  Sender: AMGEN
  Company Number: EU-AMGEN-NLDSP2025210349

PATIENT
  Age: 8 Year
  Sex: Female

DRUGS (17)
  1. ADALIMUMAB [Suspect]
     Active Substance: ADALIMUMAB
     Indication: Rasmussen encephalitis
     Dosage: 20 MILLIGRAM, Q2WK
     Route: 065
  2. ADALIMUMAB [Suspect]
     Active Substance: ADALIMUMAB
     Dosage: 40 MILLIGRAM, Q2WK
     Route: 065
  3. OXCARBAZEPINE [Concomitant]
     Active Substance: OXCARBAZEPINE
     Indication: Rasmussen encephalitis
     Dosage: 540 MILLIGRAM, BID
  4. LACOSAMIDE [Concomitant]
     Active Substance: LACOSAMIDE
     Indication: Rasmussen encephalitis
  5. VALPROIC ACID [Concomitant]
     Active Substance: VALPROIC ACID
     Indication: Rasmussen encephalitis
  6. PHENYTOIN [Concomitant]
     Active Substance: PHENYTOIN
     Indication: Rasmussen encephalitis
  7. CLOBAZAM [Concomitant]
     Active Substance: CLOBAZAM
     Indication: Rasmussen encephalitis
  8. CLOBAZAM [Concomitant]
     Active Substance: CLOBAZAM
     Dosage: 20 MILLIGRAM, QD
  9. VIGABATRIN [Concomitant]
     Active Substance: VIGABATRIN
     Indication: Rasmussen encephalitis
     Dosage: UNK
  10. VIGABATRIN [Concomitant]
     Active Substance: VIGABATRIN
     Dosage: 1100 MILLIGRAM, BID
  11. METHYLPREDNISOLONE [Concomitant]
     Active Substance: METHYLPREDNISOLONE
     Indication: Rasmussen encephalitis
     Dosage: 20 MILLIGRAM/KILOGRAM, QD (FOR 4 DAYS)
     Route: 040
  12. METHOTREXATE [Concomitant]
     Active Substance: METHOTREXATE
     Indication: Rasmussen encephalitis
     Dosage: 12.5 MILLIGRAM, QWK
  13. PREDNISOLONE [Concomitant]
     Active Substance: PREDNISOLONE
     Indication: Rasmussen encephalitis
     Dosage: 2 MILLIGRAM/KILOGRAM, QD
  14. PREDNISOLONE [Concomitant]
     Active Substance: PREDNISOLONE
     Dosage: TAPERING
  15. PREDNISOLONE [Concomitant]
     Active Substance: PREDNISOLONE
     Dosage: 1 MILLIGRAM/KILOGRAM, QD (WITH GRADUAL TAPERING)
     Route: 048
  16. PREDNISOLONE [Concomitant]
     Active Substance: PREDNISOLONE
     Dosage: 4 MILLIGRAM, QD
  17. ANAKINRA [Concomitant]
     Active Substance: ANAKINRA
     Indication: Rasmussen encephalitis
     Dosage: 100MG/DAY; 3MG/KG/DAY
     Route: 058

REACTIONS (3)
  - Rasmussen encephalitis [Unknown]
  - Drug ineffective for unapproved indication [Unknown]
  - Off label use [Unknown]
